FAERS Safety Report 18584397 (Version 2)
Quarter: 2020Q4

REPORT INFORMATION
  Report Type: Spontaneous
  Country: US (occurrence: US)
  Receive Date: 20201207
  Receipt Date: 20201210
  Transmission Date: 20210114
  Serious: No
  Sender: FDA-Public Use
  Company Number: US-009507513-2012USA002300

PATIENT
  Sex: Female

DRUGS (1)
  1. NEXPLANON [Suspect]
     Active Substance: ETONOGESTREL
     Indication: CONTRACEPTION
     Dosage: 1 IMPLANT (1 DOSAGE FORM), EVERY THREE YEARS, IN LEFT ARM
     Route: 059
     Dates: start: 20200924

REACTIONS (5)
  - Wound [Unknown]
  - Implant site abscess [Unknown]
  - Impaired healing [Unknown]
  - Infection [Unknown]
  - Device kink [Not Recovered/Not Resolved]

NARRATIVE: CASE EVENT DATE: 2020
